FAERS Safety Report 13147118 (Version 4)
Quarter: 2017Q1

REPORT INFORMATION
  Report Type: Spontaneous
  Country: PT (occurrence: PT)
  Receive Date: 20170125
  Receipt Date: 20170316
  Transmission Date: 20170428
  Serious: Yes (Hospitalization)
  Sender: FDA-Public Use
  Company Number: PT-ROCHE-1884206

PATIENT
  Age: 77 Year
  Sex: Male
  Weight: 84 kg

DRUGS (5)
  1. HERCEPTIN [Suspect]
     Active Substance: TRASTUZUMAB
     Indication: GASTRIC CANCER
     Dosage: FIRST TREATMENT (LOADING DOSE)
     Route: 042
     Dates: start: 20170119, end: 20170119
  2. RANITIDINE. [Concomitant]
     Active Substance: RANITIDINE
     Dosage: SINGLE ADMINISTRATION
     Route: 042
     Dates: start: 20170119, end: 20170119
  3. DEXAMETHASONE. [Concomitant]
     Active Substance: DEXAMETHASONE
     Dosage: SINGLE ADMINISTRATION
     Route: 042
     Dates: start: 20170119, end: 20170119
  4. POTASSIUM CHLORIDE. [Concomitant]
     Active Substance: POTASSIUM CHLORIDE
     Dosage: SINGLE ADMINISTRATION
     Route: 042
     Dates: start: 20170119, end: 20170119
  5. ONDANSETRON [Concomitant]
     Active Substance: ONDANSETRON
     Dosage: SINGLE ADMINISTRATION
     Route: 042
     Dates: start: 20170119, end: 20170119

REACTIONS (2)
  - Tremor [Recovered/Resolved]
  - Feeling cold [Recovered/Resolved]

NARRATIVE: CASE EVENT DATE: 20170119
